FAERS Safety Report 17266944 (Version 2)
Quarter: 2020Q1

REPORT INFORMATION
  Report Type: Spontaneous
  Country: CH (occurrence: CH)
  Receive Date: 20200114
  Receipt Date: 20200221
  Transmission Date: 20200409
  Serious: Yes (Other)
  Sender: FDA-Public Use
  Company Number: CH-ACTELION-A-CH2020-200282

PATIENT
  Sex: Female
  Weight: 58 kg

DRUGS (2)
  1. ADCIRCA [Concomitant]
     Active Substance: TADALAFIL
     Dosage: UNK
     Dates: start: 2014
  2. TRACLEER [Suspect]
     Active Substance: BOSENTAN
     Indication: PULMONARY ARTERIAL HYPERTENSION
     Dosage: 125 MG, BID
     Route: 048
     Dates: start: 201012, end: 201601

REACTIONS (7)
  - Mastectomy [Recovered/Resolved]
  - Invasive ductal breast carcinoma [Recovered/Resolved]
  - Axillary lymphadenectomy [Recovered/Resolved]
  - Biopsy breast [Recovered/Resolved]
  - Walking distance test abnormal [Recovering/Resolving]
  - Syncope [Unknown]
  - Dizziness [Unknown]

NARRATIVE: CASE EVENT DATE: 2014
